FAERS Safety Report 23326592 (Version 1)
Quarter: 2023Q4

REPORT INFORMATION
  Report Type: Spontaneous
  Country: AU (occurrence: AU)
  Receive Date: 20231221
  Receipt Date: 20231221
  Transmission Date: 20240110
  Serious: No
  Sender: FDA-Public Use
  Company Number: AU-JAZZ PHARMACEUTICALS-2022-AU-011873

PATIENT
  Sex: Female

DRUGS (2)
  1. ZEPZELCA [Suspect]
     Active Substance: LURBINECTEDIN
     Indication: Small cell lung cancer
     Dosage: 4 MILLIGRAM
     Route: 042
     Dates: start: 202207
  2. ZEPZELCA [Suspect]
     Active Substance: LURBINECTEDIN
     Dosage: 5 MILLIGRAM
     Route: 042
     Dates: start: 202207, end: 202207

REACTIONS (1)
  - Fatigue [Unknown]
